FAERS Safety Report 4504671-0 (Version None)
Quarter: 2004Q3

REPORT INFORMATION
  Report Type: 
  Country: None (occurrence: None)
  Receive Date: 20040927
  Receipt Date: 20040709
  Transmission Date: 20050211
  Serious: No
  Sender: FDA-Public Use
  Company Number: USA040772232

PATIENT
  Age: 9 Year
  Sex: Male
  Weight: 27 kg

DRUGS (2)
  1. STRATTERA [Suspect]
     Dosage: 40 MG/1 AT BEDTIME
     Dates: start: 20040514
  2. CONCERTA [Concomitant]

REACTIONS (7)
  - ANGER [None]
  - ANXIETY [None]
  - DEPRESSED MOOD [None]
  - FEAR [None]
  - INAPPROPRIATE AFFECT [None]
  - MORBID THOUGHTS [None]
  - PRESCRIBED OVERDOSE [None]
